FAERS Safety Report 5483221-9 (Version None)
Quarter: 2007Q4

REPORT INFORMATION
  Report Type: 
  Country: None (occurrence: None)
  Receive Date: 20071009
  Receipt Date: 20071001
  Transmission Date: 20080405
  Serious: Yes (Death, Hospitalization)
  Sender: FDA-Public Use
  Company Number: 2006-07-1987

PATIENT
  Age: 42 Year
  Sex: Male

DRUGS (4)
  1. VIRAFERONPEG [Suspect]
     Indication: HEPATITIS C
     Dosage: 100 MCG; QW; SC
     Route: 058
     Dates: start: 20060401, end: 20060607
  2. REBETOL [Suspect]
     Indication: HEPATITIS C
     Dosage: 400 MG; BID; PO
     Route: 048
     Dates: start: 20060401, end: 20060607
  3. LAMOTRIGINE (CON.) [Concomitant]
  4. PHENYTOIN (CON.) [Concomitant]

REACTIONS (13)
  - ACIDOSIS [None]
  - ACUTE HEPATIC FAILURE [None]
  - CARDIO-RESPIRATORY ARREST [None]
  - EPILEPSY [None]
  - HAEMODIALYSIS [None]
  - HEPATITIS ACUTE [None]
  - MULTI-ORGAN FAILURE [None]
  - NEPHRITIS [None]
  - NO THERAPEUTIC RESPONSE [None]
  - RENAL FAILURE ACUTE [None]
  - SEPSIS [None]
  - SOMNOLENCE [None]
  - STATUS EPILEPTICUS [None]
